FAERS Safety Report 14703570 (Version 3)
Quarter: 2018Q4

REPORT INFORMATION
  Report Type: Report from Study
  Country: None (occurrence: RO)
  Receive Date: 20180402
  Receipt Date: 20181207
  Transmission Date: 20190204
  Serious: Yes (Death)
  Sender: FDA-Public Use
  Company Number: RO-ABBVIE-18P-135-2305315-00

PATIENT
  Age: 66 Year
  Sex: Male
  Weight: 102 kg

DRUGS (11)
  1. DAVIA [Concomitant]
     Indication: COGNITIVE DISORDER
     Route: 048
     Dates: start: 2016
  2. CONCOR [Concomitant]
     Active Substance: BISOPROLOL FUMARATE
     Indication: HYPERTENSION
     Route: 048
     Dates: start: 201606
  3. MEMANTINE. [Concomitant]
     Active Substance: MEMANTINE
     Indication: COGNITIVE DISORDER
     Route: 048
     Dates: start: 2016
  4. OMEPRAZOL [Concomitant]
     Active Substance: OMEPRAZOLE
     Indication: GASTROSTOMY
     Route: 048
     Dates: start: 20170207
  5. MOTILIUM [Concomitant]
     Active Substance: DOMPERIDONE
     Indication: GASTROSTOMY
     Route: 048
     Dates: start: 20170207
  6. ROSUVASTATIN. [Concomitant]
     Active Substance: ROSUVASTATIN
     Indication: DYSLIPIDAEMIA
     Route: 048
     Dates: start: 20160630
  7. NEUPRO [Concomitant]
     Active Substance: ROTIGOTINE
     Indication: PARKINSON^S DISEASE
     Route: 062
     Dates: start: 20170220
  8. PARKOVIT [Concomitant]
     Indication: PARKINSON^S DISEASE
     Route: 048
     Dates: start: 20170220
  9. DUODOPA [Suspect]
     Active Substance: CARBIDOPA\LEVODOPA
     Indication: PARKINSON^S DISEASE
     Dosage: TITRATION: END OF  TITRATION DOSING: MD: 7.5 ML, CD: 4 ML/H, ED: 2 ML, 3X/D, 16 H
     Route: 050
     Dates: start: 20170208, end: 20170213
  10. DUODOPA [Suspect]
     Active Substance: CARBIDOPA\LEVODOPA
     Dosage: 7.5 ML AM, 4 ML/HR CONTINUOUS, 2 ML EXTRA DOSE
     Route: 050
     Dates: start: 20170214
  11. ASPENTER [Concomitant]
     Active Substance: ASPIRIN
     Indication: CARDIOVASCULAR EVENT PROPHYLAXIS
     Route: 048
     Dates: start: 20160630

REACTIONS (1)
  - Starvation [Fatal]

NARRATIVE: CASE EVENT DATE: 20180301
